FAERS Safety Report 6312810-4 (Version None)
Quarter: 2009Q3

REPORT INFORMATION
  Report Type: 
  Country: None (occurrence: None)
  Receive Date: 20090818
  Receipt Date: 20090810
  Transmission Date: 20100115
  Serious: Yes (Other)
  Sender: FDA-Public Use
  Company Number: JP-JNJFOC-20090804188

PATIENT

DRUGS (2)
  1. DUROTEP MT [Suspect]
     Indication: DRUG USE FOR UNKNOWN INDICATION
     Route: 062
  2. OPSO [Concomitant]
     Route: 048

REACTIONS (2)
  - DELIRIUM [None]
  - HALLUCINATION [None]
